FAERS Safety Report 7093172-4 (Version None)
Quarter: 2010Q4

REPORT INFORMATION
  Report Type: 
  Country: None (occurrence: None)
  Receive Date: 20101110
  Receipt Date: 20080820
  Transmission Date: 20110411
  Serious: No
  Sender: FDA-Public Use
  Company Number: US-KINGPHARMUSA00001-K200800988

PATIENT
  Sex: Female
  Weight: 74.83 kg

DRUGS (3)
  1. LEVOXYL [Suspect]
     Indication: RADIOTHERAPY TO THYROID
     Dosage: UNK, QD
     Route: 048
     Dates: start: 20070101
  2. DIOVAN                             /01319601/ [Concomitant]
     Indication: HYPERTENSION
  3. LEXAPRO [Concomitant]
     Indication: DEPRESSION

REACTIONS (4)
  - ALOPECIA [None]
  - CONSTIPATION [None]
  - DRY EYE [None]
  - SOMNOLENCE [None]
